FAERS Safety Report 8542074-2 (Version None)
Quarter: 2012Q3

REPORT INFORMATION
  Report Type: 
  Country: None (occurrence: None)
  Receive Date: 20120726
  Receipt Date: 20120206
  Transmission Date: 20120928
  Serious: No
  Sender: FDA-Public Use
  Company Number: US-ASTRAZENECA-2011SE62083

PATIENT
  Age: 48 Year
  Sex: Female
  Weight: 65.8 kg

DRUGS (10)
  1. LIMOTRIGINE [Concomitant]
  2. CLONAZEPAM [Concomitant]
  3. SEROQUEL [Suspect]
     Indication: DEPRESSION
     Dosage: 50 MG TWICE DAILY AND 2 TABLETS OF 200MG AT BEDTIME
     Route: 048
  4. PRENOND [Concomitant]
  5. RANITIDINE HCL [Concomitant]
  6. CYMBALTA [Suspect]
     Route: 065
  7. SEROQUEL [Suspect]
     Indication: BIPOLAR DISORDER
     Dosage: 50 MG TWICE DAILY AND 2 TABLETS OF 200MG AT BEDTIME
     Route: 048
  8. LEVOTHYROXINE SODIUM [Concomitant]
  9. HYDROCODONE BITARTRATE [Concomitant]
  10. SPIRONOLACTONE [Concomitant]

REACTIONS (7)
  - MALAISE [None]
  - NERVOUS SYSTEM DISORDER [None]
  - DRUG DOSE OMISSION [None]
  - MENTAL IMPAIRMENT [None]
  - INSOMNIA [None]
  - EMOTIONAL DISORDER [None]
  - NERVOUSNESS [None]
